FAERS Safety Report 6620588-X (Version None)
Quarter: 2010Q1

REPORT INFORMATION
  Report Type: 
  Country: None (occurrence: None)
  Receive Date: 20100309
  Receipt Date: 20100301
  Transmission Date: 20100710
  Serious: Yes (Hospitalization)
  Sender: FDA-Public Use
  Company Number: JP-MERCK-1003USA00648

PATIENT
  Age: 80 Year

DRUGS (1)
  1. PEPCID INJECTION [Suspect]
     Route: 042

REACTIONS (1)
  - HAEMOLYTIC ANAEMIA [None]
